FAERS Safety Report 18337065 (Version 1)
Quarter: 2020Q4

REPORT INFORMATION
  Report Type: Spontaneous
  Country: US (occurrence: US)
  Receive Date: 20201002
  Receipt Date: 20201002
  Transmission Date: 20210113
  Serious: No
  Sender: FDA-Public Use
  Company Number: US-MELINTA THERAPEUTICS, INC-US-MLNT-19-00194

PATIENT
  Age: 38 Year
  Sex: Male
  Weight: 76.3 kg

DRUGS (2)
  1. ORBACTIV [Suspect]
     Active Substance: ORITAVANCIN
     Indication: OSTEOMYELITIS
     Route: 041
     Dates: start: 20190930, end: 20190930
  2. ORBACTIV [Suspect]
     Active Substance: ORITAVANCIN
     Dosage: 436 ML
     Route: 041
     Dates: start: 20191015, end: 20191015

REACTIONS (5)
  - Headache [Recovered/Resolved]
  - Off label use [Recovered/Resolved]
  - Back pain [Recovered/Resolved]
  - Infusion related reaction [Recovered/Resolved]
  - Chest pain [Recovered/Resolved]

NARRATIVE: CASE EVENT DATE: 20191015
